FAERS Safety Report 4616521-2 (Version None)
Quarter: 2005Q2

REPORT INFORMATION
  Report Type: 
  Country: None (occurrence: None)
  Receive Date: 20050311
  Receipt Date: 20041230
  Transmission Date: 20051028
  Serious: No
  Sender: FDA-Public Use
  Company Number: 2004-00991

PATIENT
  Age: 70 Year
  Sex: Female
  Weight: 51.2 kg

DRUGS (4)
  1. VELCADE [Suspect]
     Indication: MULTIPLE MYELOMA
     Dates: start: 20041201
  2. NORVASC [Concomitant]
  3. WARFARIN SODIUM [Concomitant]
  4. NEURONTIN [Concomitant]

REACTIONS (4)
  - OCULAR HYPERAEMIA [None]
  - PARAESTHESIA [None]
  - SWELLING [None]
  - VISION BLURRED [None]
